FAERS Safety Report 25185625 (Version 1)
Quarter: 2025Q2

REPORT INFORMATION
  Report Type: Spontaneous
  Country: GB (occurrence: GB)
  Receive Date: 20250410
  Receipt Date: 20250410
  Transmission Date: 20250716
  Serious: Yes (Other)
  Sender: INSUD PHARMA
  Company Number: GB-THERAMEX-2025000936

PATIENT
  Age: 72 Year
  Sex: Female

DRUGS (1)
  1. ESTRADIOL [Suspect]
     Active Substance: ESTRADIOL
     Indication: Osteoporosis prophylaxis

REACTIONS (3)
  - Vaginal haemorrhage [Unknown]
  - Off label use [Unknown]
  - Contraindicated product prescribed [Unknown]
